FAERS Safety Report 16170216 (Version 3)
Quarter: 2019Q2

REPORT INFORMATION
  Report Type: Report from Study
  Country: IT (occurrence: IT)
  Receive Date: 20190408
  Receipt Date: 20190606
  Transmission Date: 20190711
  Serious: Yes (Death, Hospitalization)
  Sender: FDA-Public Use
  Company Number: PHHY2019IT079551

PATIENT
  Age: 64 Year
  Sex: Male

DRUGS (3)
  1. GANFORT [Concomitant]
     Active Substance: BIMATOPROST\TIMOLOL
     Indication: GLAUCOMA
     Dosage: UNK, QD
     Route: 065
     Dates: start: 20181126
  2. TAFINLAR [Suspect]
     Active Substance: DABRAFENIB MESYLATE
     Indication: METASTATIC MALIGNANT MELANOMA
     Dosage: 300 MG, QD
     Route: 048
     Dates: start: 20181203, end: 20190330
  3. TRAMETINIB [Suspect]
     Active Substance: TRAMETINIB
     Indication: METASTATIC MALIGNANT MELANOMA
     Dosage: 2 MG, QD
     Route: 048
     Dates: start: 20181203, end: 20190330

REACTIONS (5)
  - Acute hepatic failure [Recovered/Resolved]
  - Pyrexia [Fatal]
  - Septic shock [Recovered/Resolved]
  - Infection [Unknown]
  - Cough [Fatal]

NARRATIVE: CASE EVENT DATE: 20190401
